FAERS Safety Report 15573430 (Version 1)
Quarter: 2018Q4

REPORT INFORMATION
  Report Type: Spontaneous
  Country: US (occurrence: US)
  Receive Date: 20181101
  Receipt Date: 20181101
  Transmission Date: 20190205
  Serious: Yes (Death, Hospitalization)
  Sender: FDA-Public Use
  Company Number: US-VELOXIS PHARMACEUTICALS, INC.-2018VELUS1227

PATIENT
  Age: 68 Year
  Sex: Male

DRUGS (3)
  1. BASILIXIMAB [Concomitant]
     Active Substance: BASILIXIMAB
     Indication: IMMUNE TOLERANCE INDUCTION
     Dosage: UNK
     Route: 065
  2. ENVARSUS XR [Suspect]
     Active Substance: TACROLIMUS
     Indication: LIVER TRANSPLANT
  3. MYCOPHENOLATE MOFETIL. [Suspect]
     Active Substance: MYCOPHENOLATE MOFETIL
     Indication: LIVER TRANSPLANT

REACTIONS (10)
  - Intentional product use issue [Unknown]
  - Graft versus host disease [Fatal]
  - Multiple organ dysfunction syndrome [Fatal]
  - Graft versus host disease in skin [Recovering/Resolving]
  - Cytomegalovirus test positive [Recovered/Resolved]
  - Pancytopenia [Unknown]
  - Sepsis [Fatal]
  - Pneumonia [Fatal]
  - Stenotrophomonas infection [Unknown]
  - Neutropenia [Unknown]
